FAERS Safety Report 7120574-X (Version None)
Quarter: 2010Q4

REPORT INFORMATION
  Report Type: 
  Country: None (occurrence: None)
  Receive Date: 20101119
  Receipt Date: 20101119
  Transmission Date: 20110411
  Serious: No
  Sender: FDA-Public Use
  Company Number: None

PATIENT
  Sex: Female
  Weight: 88.905 kg

DRUGS (12)
  1. LOSARTAN POTASSIUM AND HYDROCHLOROTHIAZIDE [Suspect]
     Indication: HYPERTENSION
     Dosage: 50/12.5 MG 1 BID ORALLY
     Route: 048
     Dates: start: 20100419, end: 20100513
  2. METFORMIN HCL [Suspect]
  3. POTASSIUM [Concomitant]
  4. MECLIZINE [Concomitant]
  5. ZYRTEC [Concomitant]
  6. CLONAZEPAM [Concomitant]
  7. ASPIRIN [Concomitant]
  8. IBUPROFEN [Concomitant]
  9. PREVACID [Concomitant]
  10. PATANOL [Concomitant]
  11. FISH OIL [Concomitant]
  12. HYZAAR [Suspect]

REACTIONS (3)
  - BLOOD PRESSURE INCREASED [None]
  - HEART RATE INCREASED [None]
  - PRODUCT SUBSTITUTION ISSUE [None]
